FAERS Safety Report 7043616-9 (Version None)
Quarter: 2010Q4

REPORT INFORMATION
  Report Type: 
  Country: None (occurrence: None)
  Receive Date: 20101013
  Receipt Date: 20101008
  Transmission Date: 20110411
  Serious: Yes (Hospitalization)
  Sender: FDA-Public Use
  Company Number: B0677292A

PATIENT
  Age: 79 Year
  Sex: Female
  Weight: 81 kg

DRUGS (7)
  1. MELPHALAN HYDROCHLORIDE [Suspect]
     Indication: MULTIPLE MYELOMA
     Route: 065
     Dates: start: 20100505
  2. THALIDOMIDE [Suspect]
     Indication: MULTIPLE MYELOMA
     Route: 048
     Dates: start: 20100505
  3. PREDNISONE [Suspect]
     Indication: MULTIPLE MYELOMA
     Dates: start: 20100505
  4. ENOXAPARIN SODIUM [Concomitant]
     Indication: THROMBOSIS PROPHYLAXIS
     Dosage: 40MG PER DAY
     Dates: start: 20100504
  5. NEUPOGEN [Concomitant]
  6. PAMIDRONATE DISODIUM [Concomitant]
     Dosage: 90MG MONTHLY
     Dates: start: 20100501
  7. FILGRASTIM [Concomitant]
     Dates: start: 20100914, end: 20100915

REACTIONS (1)
  - PNEUMONIA [None]
